FAERS Safety Report 22245434 (Version 1)
Quarter: 2023Q2

REPORT INFORMATION
  Report Type: Spontaneous
  Country: US (occurrence: None)
  Receive Date: 20230423
  Receipt Date: 20230423
  Transmission Date: 20230721
  Serious: Yes (Life-Threatening, Hospitalization, Disabling, Other)
  Sender: FDA-Public Use
  Company Number: None

PATIENT
  Age: 63 Year
  Sex: Female
  Weight: 58.5 kg

DRUGS (14)
  1. FENTANYL TRANSDERMAL SYSTEM [Suspect]
     Active Substance: FENTANYL
     Indication: Pain management
     Dosage: OTHER QUANTITY : 5 PATCH(ES);?OTHER FREQUENCY : 72 HOURS;?
     Route: 062
     Dates: start: 20230408, end: 20230411
  2. FENTANYL TRANSDERMAL SYSTEM [Suspect]
     Active Substance: FENTANYL
     Indication: Pain management
     Dosage: OTHER QUANTITY : 5 PATCH(ES);?OTHER FREQUENCY : 72 HOURS;?
     Route: 062
     Dates: start: 20230422
  3. Fentynel Duragesic patches [Concomitant]
  4. NORCO 10-325 8 [Concomitant]
  5. NEURONTIN [Concomitant]
     Active Substance: GABAPENTIN
  6. PROLIA [Concomitant]
     Active Substance: DENOSUMAB
  7. CYMBALTA [Concomitant]
     Active Substance: DULOXETINE HYDROCHLORIDE
  8. ABILIFY [Concomitant]
     Active Substance: ARIPIPRAZOLE
  9. LINZESS [Concomitant]
     Active Substance: LINACLOTIDE
  10. omepresole [Concomitant]
  11. VITAMIN D3 [Concomitant]
     Active Substance: CHOLECALCIFEROL
  12. calcium w/magnesium and D3 [Concomitant]
  13. MYLANTA [Concomitant]
     Active Substance: ALUMINUM HYDROXIDE\DIMETHICONE\MAGNESIUM HYDROXIDE
  14. VITAMINS [Concomitant]
     Active Substance: VITAMINS

REACTIONS (4)
  - Blood pressure decreased [None]
  - Hyperhidrosis [None]
  - Dizziness [None]
  - Dehydration [None]

NARRATIVE: CASE EVENT DATE: 20230415
